FAERS Safety Report 4851586-4 (Version None)
Quarter: 2005Q4

REPORT INFORMATION
  Report Type: 
  Country: None (occurrence: None)
  Receive Date: 20051212
  Receipt Date: 20031104
  Transmission Date: 20060501
  Serious: Yes (Hospitalization)
  Sender: FDA-Public Use
  Company Number: GB-ABBOTT-03P-167-0240498-00

PATIENT
  Sex: Male
  Weight: 73 kg

DRUGS (6)
  1. HUMIRA [Suspect]
     Indication: RHEUMATOID ARTHRITIS
     Route: 058
     Dates: start: 20021223
  2. SULFASALAZINE [Concomitant]
  3. HCQ [Concomitant]
  4. LANSOPRAZOLE [Concomitant]
  5. PREDNISOLONE [Concomitant]
  6. BRUFEN [Concomitant]

REACTIONS (1)
  - PLEURAL EFFUSION [None]
